FAERS Safety Report 20526485 (Version 1)
Quarter: 2022Q1

REPORT INFORMATION
  Report Type: Spontaneous
  Country: US (occurrence: None)
  Receive Date: 20220225
  Receipt Date: 20220225
  Transmission Date: 20220423
  Serious: No
  Sender: FDA-Public Use
  Company Number: None

PATIENT
  Age: 52 Year
  Sex: Male
  Weight: 78.75 kg

DRUGS (11)
  1. OXYCODONE [Suspect]
     Active Substance: OXYCODONE
     Indication: Pain
     Dosage: OTHER QUANTITY : 1 TABLET(S)?FREQUENCY : 3 TIMES A DAY?
     Route: 048
     Dates: start: 20220218
  2. HUMALOG [Concomitant]
     Active Substance: INSULIN LISPRO
  3. LANTUS [Concomitant]
     Active Substance: INSULIN GLARGINE
  4. OXYCODONE [Concomitant]
     Active Substance: OXYCODONE
  5. GABAPENTIN [Concomitant]
     Active Substance: GABAPENTIN
  6. METOPROLOL [Concomitant]
     Active Substance: METOPROLOL
  7. AMITRIPTYLINE [Concomitant]
     Active Substance: AMITRIPTYLINE
  8. METHOCARBAMOL [Concomitant]
     Active Substance: METHOCARBAMOL
  9. GLOCOSAMINE [Concomitant]
  10. CHONDROINTIN [Concomitant]
  11. DIMETHYL SULFONE [Concomitant]
     Active Substance: DIMETHYL SULFONE

REACTIONS (3)
  - Product substitution issue [None]
  - Suspected product quality issue [None]
  - Drug ineffective [None]

NARRATIVE: CASE EVENT DATE: 20220222
